FAERS Safety Report 16198233 (Version 2)
Quarter: 2019Q3

REPORT INFORMATION
  Report Type: Report from Study
  Country: CA (occurrence: CA)
  Receive Date: 20190415
  Receipt Date: 20190903
  Transmission Date: 20191004
  Serious: Yes (Death, Hospitalization, Other)
  Sender: FDA-Public Use
  Company Number: CA-SA-2019SA102887

PATIENT
  Age: 67 Year
  Sex: Male
  Weight: 70 kg

DRUGS (15)
  1. ESBRIET [Suspect]
     Active Substance: PIRFENIDONE
     Dosage: 1602.0 MG, UNK
     Route: 048
  2. GLICLAZIDE [Concomitant]
     Active Substance: GLICLAZIDE
     Dosage: 80 MG, BID
  3. VENLAFAXINE HYDROCHLORIDE. [Concomitant]
     Active Substance: VENLAFAXINE HYDROCHLORIDE
     Dosage: 75 MG, UNK
     Route: 065
  4. RABEPRAZOLE [Concomitant]
     Active Substance: RABEPRAZOLE
     Dosage: 20 MG, UNK
     Route: 065
  5. ESBRIET [Suspect]
     Active Substance: PIRFENIDONE
     Dosage: 1602.0 MG, UNK
     Route: 048
  6. METFORMIN [Concomitant]
     Active Substance: METFORMIN HYDROCHLORIDE
     Dosage: 100 MG, BID
  7. ROSUVASTATIN. [Concomitant]
     Active Substance: ROSUVASTATIN
     Dosage: UNK
  8. ESBRIET [Suspect]
     Active Substance: PIRFENIDONE
     Dosage: 2403 MG, UNK
     Route: 048
  9. ESBRIET [Suspect]
     Active Substance: PIRFENIDONE
     Indication: IDIOPATHIC PULMONARY FIBROSIS
     Dosage: 801.0 MG
     Route: 048
     Dates: start: 2018, end: 2018
  10. ESBRIET [Suspect]
     Active Substance: PIRFENIDONE
     Dosage: 801 MG, QD
     Route: 048
  11. ESBRIET [Suspect]
     Active Substance: PIRFENIDONE
     Dosage: 267 MG, TID
     Route: 048
  12. BUPROPION. [Concomitant]
     Active Substance: BUPROPION
     Dosage: UNK
     Route: 065
  13. CLOPIDOGREL BISULFATE. [Suspect]
     Active Substance: CLOPIDOGREL BISULFATE
     Indication: PRODUCT USED FOR UNKNOWN INDICATION
     Dosage: UNK UNK, UNK
  14. ESBRIET [Suspect]
     Active Substance: PIRFENIDONE
     Dosage: 534 MG, TID
     Route: 048
  15. SAXAGLIPTIN HYDROCHLORIDE. [Concomitant]
     Active Substance: SAXAGLIPTIN HYDROCHLORIDE
     Dosage: UNK
     Route: 065

REACTIONS (26)
  - White blood cell count decreased [Unknown]
  - Respiratory failure [Fatal]
  - Dyspnoea [Fatal]
  - Fatigue [Recovering/Resolving]
  - Pulmonary function test abnormal [Unknown]
  - General physical health deterioration [Unknown]
  - Loss of consciousness [Fatal]
  - Oxygen saturation decreased [Fatal]
  - Oxygen saturation abnormal [Recovering/Resolving]
  - Cardiac disorder [Unknown]
  - Neutropenia [Recovered/Resolved]
  - Fatigue [Not Recovered/Not Resolved]
  - Dry skin [Unknown]
  - Oxygen saturation decreased [Unknown]
  - Cough [Recovering/Resolving]
  - Asthenia [Unknown]
  - Arrhythmia [Unknown]
  - Productive cough [Recovering/Resolving]
  - Blood glucose increased [Unknown]
  - Eye pruritus [Unknown]
  - Coronary arterial stent insertion [Unknown]
  - Nasopharyngitis [Unknown]
  - Weight decreased [Unknown]
  - Erythema [Recovered/Resolved]
  - Dyspnoea exertional [Not Recovered/Not Resolved]
  - Skin exfoliation [Unknown]

NARRATIVE: CASE EVENT DATE: 20150912
